FAERS Safety Report 5658945-0 (Version None)
Quarter: 2008Q1

REPORT INFORMATION
  Report Type: 
  Country: None (occurrence: None)
  Receive Date: 20080310
  Receipt Date: 20070525
  Transmission Date: 20080703
  Serious: Yes (Other)
  Sender: FDA-Public Use
  Company Number: US-BAYER-200711548BCC

PATIENT
  Age: 40 Year
  Sex: Male
  Weight: 118 kg

DRUGS (4)
  1. ALEVE [Suspect]
     Indication: HEADACHE
     Dosage: TOTAL DAILY DOSE: 440 MG  UNIT DOSE: 220 MG
     Route: 048
     Dates: start: 20070514
  2. ALEVE [Interacting]
     Dosage: UNIT DOSE: 220 MG
     Route: 048
     Dates: start: 20070515
  3. WARFARIN SODIUM [Interacting]
     Indication: DRUG USE FOR UNKNOWN INDICATION
     Dates: start: 20070401
  4. ADVAIR DISKUS 100/50 [Concomitant]

REACTIONS (1)
  - BLOOD URINE PRESENT [None]
